FAERS Safety Report 7922645-4 (Version None)
Quarter: 2011Q4

REPORT INFORMATION
  Report Type: 
  Country: None (occurrence: None)
  Receive Date: 20111117
  Receipt Date: 20110330
  Transmission Date: 20120403
  Serious: No
  Sender: FDA-Public Use
  Company Number: US-ALLERGAN-1104488US

PATIENT
  Age: 95 Year
  Sex: Female

DRUGS (1)
  1. COMBIGAN [Suspect]
     Indication: INTRAOCULAR PRESSURE INCREASED
     Dosage: UNK
     Route: 047
     Dates: start: 20110301

REACTIONS (4)
  - DRY MOUTH [None]
  - DIZZINESS [None]
  - DYSARTHRIA [None]
  - NAUSEA [None]
